FAERS Safety Report 7771965-5 (Version None)
Quarter: 2011Q3

REPORT INFORMATION
  Report Type: 
  Country: None (occurrence: None)
  Receive Date: 20110922
  Receipt Date: 20110407
  Transmission Date: 20111222
  Serious: No
  Sender: FDA-Public Use
  Company Number: US-ASTRAZENECA-2010SE11430

PATIENT
  Age: 63 Year
  Sex: Female
  Weight: 78.5 kg

DRUGS (20)
  1. SEROQUEL [Suspect]
     Indication: SLEEP DISORDER
     Route: 048
  2. SEROQUEL [Suspect]
     Route: 048
     Dates: start: 20100301
  3. SEROQUEL [Suspect]
     Dosage: 100 MG IN THE AFTERNOON
     Route: 048
     Dates: start: 20100301
  4. LITHIUM [Concomitant]
     Indication: AFFECTIVE DISORDER
     Route: 048
  5. SEROQUEL [Suspect]
     Route: 048
     Dates: start: 20100301
  6. SEROQUEL [Suspect]
     Route: 048
     Dates: start: 20100301
  7. SEROQUEL [Suspect]
     Dosage: 100 MG IN THE AFTERNOON
     Route: 048
     Dates: start: 20100301
  8. PREDNISONE [Concomitant]
  9. SEROQUEL [Suspect]
     Indication: DEPRESSION
     Route: 048
  10. SEROQUEL [Suspect]
     Route: 048
     Dates: start: 20100301
  11. ADIVAN [Concomitant]
     Indication: ANXIETY
     Route: 048
  12. ADIVAN [Concomitant]
     Indication: SLEEP DISORDER
     Route: 048
  13. PREDNISONE [Concomitant]
     Indication: ARTHRITIS
  14. SEROQUEL [Suspect]
     Route: 048
     Dates: start: 20100301
  15. SEROQUEL [Suspect]
     Dosage: 100 MG IN THE AFTERNOON
     Route: 048
     Dates: start: 20100301
  16. SEROQUEL [Suspect]
     Indication: HALLUCINATION
     Route: 048
  17. COUMADIN [Concomitant]
     Route: 048
  18. SEROQUEL [Suspect]
     Route: 048
     Dates: start: 20100301
  19. ATENOLOL [Concomitant]
     Route: 048
  20. SIMVASTATIN [Concomitant]
     Indication: HYPERCHOLESTEROLAEMIA
     Route: 048

REACTIONS (9)
  - WEIGHT INCREASED [None]
  - ALOPECIA [None]
  - TREMOR [None]
  - DIZZINESS [None]
  - WRONG TECHNIQUE IN DRUG USAGE PROCESS [None]
  - URINE ODOUR ABNORMAL [None]
  - APHASIA [None]
  - CHROMATURIA [None]
  - FATIGUE [None]
